FAERS Safety Report 16762285 (Version 1)
Quarter: 2019Q3

REPORT INFORMATION
  Report Type: Report from Study
  Country: None (occurrence: CA)
  Receive Date: 20190831
  Receipt Date: 20190831
  Transmission Date: 20191005
  Serious: Yes (Hospitalization, Other)
  Sender: FDA-Public Use
  Company Number: CA-ABBVIE-19K-028-2618981-00

PATIENT
  Age: 35 Year
  Sex: Male

DRUGS (1)
  1. HUMIRA [Suspect]
     Active Substance: ADALIMUMAB
     Indication: HIDRADENITIS
     Route: 058
     Dates: start: 20151124

REACTIONS (14)
  - Surgery [Unknown]
  - Fatigue [Not Recovered/Not Resolved]
  - Hospitalisation [Unknown]
  - Skin irritation [Unknown]
  - Nasopharyngitis [Unknown]
  - Hidradenitis [Not Recovered/Not Resolved]
  - Scar [Unknown]
  - Wound [Unknown]
  - Panic attack [Unknown]
  - Ankylosing spondylitis [Unknown]
  - Skin graft [Unknown]
  - Back disorder [Unknown]
  - Feeling abnormal [Not Recovered/Not Resolved]
  - Depression [Not Recovered/Not Resolved]

NARRATIVE: CASE EVENT DATE: 20190826
